FAERS Safety Report 7177411-7 (Version None)
Quarter: 2010Q4

REPORT INFORMATION
  Report Type: 
  Country: None (occurrence: None)
  Receive Date: 20101220
  Receipt Date: 20101209
  Transmission Date: 20110411
  Serious: Yes (Hospitalization, Other)
  Sender: FDA-Public Use
  Company Number: US-ELI_LILLY_AND_COMPANY-US201012003029

PATIENT
  Sex: Female

DRUGS (12)
  1. FORTEO [Suspect]
     Indication: OSTEOPOROSIS
     Dosage: 20 UG, DAILY (1/D)
  2. PREVACID [Concomitant]
  3. PREDNISONE [Concomitant]
  4. COREG [Concomitant]
  5. LASIX [Concomitant]
  6. ACEON [Concomitant]
  7. POTASSIUM [Concomitant]
  8. DIGOXIN [Concomitant]
  9. COUMADIN [Concomitant]
  10. LOMOTIL [Concomitant]
  11. VITAMIN D [Concomitant]
     Dosage: UNK, OTHER
  12. VITAMIN B-12 [Concomitant]
     Dosage: UNK, OTHER

REACTIONS (1)
  - FEMUR FRACTURE [None]
